FAERS Safety Report 8290616-7 (Version None)
Quarter: 2012Q2

REPORT INFORMATION
  Report Type: 
  Country: None (occurrence: None)
  Receive Date: 20120417
  Receipt Date: 20111111
  Transmission Date: 20120825
  Serious: No
  Sender: FDA-Public Use
  Company Number: US-ASTRAZENECA-2011SE62057

PATIENT
  Age: 63 Year
  Sex: Male
  Weight: 111.1 kg

DRUGS (3)
  1. CORIG [Concomitant]
     Indication: HYPERTENSION
  2. ZOLOFT [Concomitant]
     Indication: DEPRESSION
  3. NEXIUM [Suspect]
     Indication: GASTROOESOPHAGEAL REFLUX DISEASE
     Route: 048

REACTIONS (2)
  - INAPPROPRIATE SCHEDULE OF DRUG ADMINISTRATION [None]
  - DYSPEPSIA [None]
